FAERS Safety Report 5455152-1 (Version None)
Quarter: 2007Q3

REPORT INFORMATION
  Report Type: 
  Country: None (occurrence: None)
  Receive Date: 20070914
  Receipt Date: 20070903
  Transmission Date: 20080115
  Serious: Yes (Hospitalization, Disabling, Other)
  Sender: FDA-Public Use
  Company Number: GXKR2007NL07674

PATIENT
  Age: 55 Year
  Sex: Male

DRUGS (1)
  1. METHYLPREDNISOLONE [Suspect]
     Indication: CARPAL TUNNEL SYNDROME
     Dosage: 20 MG, INJECTION NOS; INJECTION NOS

REACTIONS (5)
  - ABSCESS [None]
  - FIBROSIS [None]
  - PAIN [None]
  - SCAR [None]
  - SYNOVITIS [None]
